FAERS Safety Report 10489446 (Version 1)
Quarter: 2014Q3

REPORT INFORMATION
  Report Type: Spontaneous
  Country: DE (occurrence: None)
  Receive Date: 20140930
  Receipt Date: 20140930
  Transmission Date: 20150326
  Serious: Yes (Hospitalization)
  Sender: FDA-Public Use
  Company Number: KAD201409-001141

PATIENT
  Age: 63 Year
  Sex: Female

DRUGS (4)
  1. OXYBUTYNIN (OXYBUTYNIN) [Suspect]
     Active Substance: OXYBUTYNIN
     Dosage: 5MG ONCE DAILY IN MORNING, ORAL
     Route: 048
  2. ANASTROZOLE (ANASTROZOLE) [Suspect]
     Active Substance: ANASTROZOLE
     Dosage: 1MG ONCE DAILY IN MORNING ORAL
     Route: 048
     Dates: start: 2006
  3. TEA [Suspect]
     Active Substance: TEA LEAF
     Indication: BREAST CANCER RECURRENT
     Dosage: 725MG ONCE DAILY AFTER LUNCH, ORAL
     Route: 048
     Dates: start: 20101221
  4. RAMIPRIL (RAMIPRIL) [Suspect]
     Active Substance: RAMIPRIL
     Dosage: 2.5MG ONCE DAILY IN MORNING, ORAL
     Route: 048
     Dates: start: 2008

REACTIONS (5)
  - Hepatotoxicity [None]
  - Hepatocellular injury [None]
  - Hepatitis acute [None]
  - Drug interaction [None]
  - Dialysis [None]
